FAERS Safety Report 22095548 (Version 3)
Quarter: 2023Q1

REPORT INFORMATION
  Report Type: Spontaneous
  Country: US (occurrence: US)
  Receive Date: 20230314
  Receipt Date: 20230317
  Transmission Date: 20230418
  Serious: Yes (Other)
  Sender: FDA-Public Use
  Company Number: US-PFIZER INC-202300104692

PATIENT
  Age: 58 Year
  Sex: Female
  Weight: 67.13 kg

DRUGS (8)
  1. SOLU-CORTEF [Suspect]
     Active Substance: HYDROCORTISONE SODIUM SUCCINATE
     Indication: Adrenal disorder
     Dosage: 100 MG (I AM USING ABOUT 75 TO 80 MILLIGRAM OF THE 100 MILLIGRAM VIAL IN COURSE OF THREE DAY)
     Route: 058
     Dates: start: 2005
  2. SOLU-CORTEF [Suspect]
     Active Substance: HYDROCORTISONE SODIUM SUCCINATE
     Dosage: 24 MG, DAILY
  3. ESTROGENS [Concomitant]
     Active Substance: ESTROGENS
     Indication: Hormone therapy
     Dosage: UNK
  4. PROGESTERONE [Concomitant]
     Active Substance: PROGESTERONE
     Indication: Hormone therapy
     Dosage: UNK
  5. TESTOSTERONE [Concomitant]
     Active Substance: TESTOSTERONE
     Indication: Hormone therapy
     Dosage: UNK
  6. OXYTOCIN [Concomitant]
     Active Substance: OXYTOCIN
     Indication: Hormone therapy
     Dosage: UNK
  7. DIETARY SUPPLEMENT [Concomitant]
     Active Substance: DIETARY SUPPLEMENT
     Indication: Hormone therapy
     Dosage: UNK
  8. SYNTHROID [Concomitant]
     Active Substance: LEVOTHYROXINE SODIUM
     Indication: Hormone therapy
     Dosage: UNK

REACTIONS (4)
  - Pancreatic disorder [Unknown]
  - Asthenia [Unknown]
  - Weight increased [Unknown]
  - Intentional product misuse [Unknown]
